FAERS Safety Report 8067854-1 (Version None)
Quarter: 2012Q1

REPORT INFORMATION
  Report Type: 
  Country: None (occurrence: None)
  Receive Date: 20120124
  Receipt Date: 20120117
  Transmission Date: 20120608
  Serious: Yes (Other)
  Sender: FDA-Public Use
  Company Number: FR-PFIZER INC-2011295511

PATIENT
  Age: 5 Year
  Sex: Male
  Weight: 20 kg

DRUGS (2)
  1. BENEFIX [Suspect]
     Indication: HAEMATOMA
     Dosage: 1000 IU, 1X/DAY, AS NEEDED
     Route: 042
     Dates: start: 20110928, end: 20110929
  2. BENEFIX [Suspect]
     Dosage: 1000 IU, ALTERNATE DAY, AS NEEDED
     Route: 042
     Dates: start: 20111001, end: 20111007

REACTIONS (3)
  - HYPERSENSITIVITY [None]
  - CHILLS [None]
  - FEELING COLD [None]
